FAERS Safety Report 25043802 (Version 1)
Quarter: 2025Q1

REPORT INFORMATION
  Report Type: Spontaneous
  Country: FR (occurrence: FR)
  Receive Date: 20250306
  Receipt Date: 20250306
  Transmission Date: 20250408
  Serious: Yes (Other)
  Sender: JOHNSON AND JOHNSON
  Company Number: FR-JNJFOC-20250306552

PATIENT
  Age: 84 Year
  Sex: Male

DRUGS (2)
  1. ERLEADA [Suspect]
     Active Substance: APALUTAMIDE
     Indication: Hormone-dependent prostate cancer
     Route: 048
     Dates: start: 20241213, end: 20250131
  2. FIRMAGON [Concomitant]
     Active Substance: DEGARELIX ACETATE
     Indication: Hormone-refractory prostate cancer

REACTIONS (1)
  - Neutropenia [Unknown]
